FAERS Safety Report 5199773-2 (Version None)
Quarter: 2006Q4

REPORT INFORMATION
  Report Type: 
  Country: None (occurrence: None)
  Receive Date: 20061229
  Receipt Date: 20061222
  Transmission Date: 20070319
  Serious: Yes (Hospitalization)
  Sender: FDA-Public Use
  Company Number: 2006SP008804

PATIENT
  Age: 53 Year
  Sex: Male

DRUGS (2)
  1. VIRAFERONPEG (PEGINTERFERON ALPHA 2B) (PEGINTERFERON ALPHA 2B) [Suspect]
     Indication: MALIGNANT MELANOMA
     Dosage: 1.5 MCG/KG; QW; SC
     Route: 058
     Dates: start: 20060805, end: 20061117
  2. IDD 3 (MELANOMA VACCINE) [Suspect]
     Indication: MALIGNANT MELANOMA
     Dosage: DOSE #06 (IN SERIES); SUBCUTANEOUS
     Route: 058
     Dates: start: 20061011

REACTIONS (4)
  - ARTERIAL THROMBOSIS LIMB [None]
  - CARDIOLIPIN ANTIBODY POSITIVE [None]
  - NECROSIS [None]
  - PERIPHERAL ISCHAEMIA [None]
